FAERS Safety Report 22009100 (Version 7)
Quarter: 2023Q4

REPORT INFORMATION
  Report Type: Report from Study
  Country: CN (occurrence: CN)
  Receive Date: 20230220
  Receipt Date: 20231201
  Transmission Date: 20240110
  Serious: Yes (Death, Life-Threatening, Hospitalization)
  Sender: FDA-Public Use
  Company Number: CN-ABBVIE-4285897

PATIENT
  Age: 77 Year
  Sex: Female
  Weight: 58 kg

DRUGS (2)
  1. VENETOCLAX [Suspect]
     Active Substance: VENETOCLAX
     Indication: Acute myeloid leukaemia
     Route: 048
     Dates: start: 20221001, end: 20230128
  2. AZACITIDINE [Suspect]
     Active Substance: AZACITIDINE
     Indication: Acute myeloid leukaemia
     Dosage: ON DAYS 1-7 OF EACH 28 DAY CYCLE
     Route: 058
     Dates: start: 20221001, end: 20230108

REACTIONS (3)
  - Disease progression [Fatal]
  - Pyrexia [Unknown]
  - Cerebral haemorrhage [Unknown]

NARRATIVE: CASE EVENT DATE: 20230123
